FAERS Safety Report 7109682-7 (Version None)
Quarter: 2010Q4

REPORT INFORMATION
  Report Type: 
  Country: None (occurrence: None)
  Receive Date: 20101115
  Receipt Date: 20101115
  Transmission Date: 20110411
  Serious: Yes (Other)
  Sender: FDA-Public Use
  Company Number: None

PATIENT
  Sex: Male

DRUGS (3)
  1. RIBAPAK (RIBASHPHERE) 1200MG/DAY THREE RIVERS PHARMACEUTICALS, LLC [Suspect]
     Dosage: 600 MG EVERY AM AND PM BY MOUTH
     Route: 048
     Dates: start: 20100202, end: 20100327
  2. PEG-INTRON REDIPEN 150MCG SCHERING CORPORATION A SUBSIDIARY OF MERCK + [Suspect]
     Dosage: 0.5ML WEEKLY SUBCUTANEOUS
     Route: 058
  3. NEUPOGEN [Concomitant]

REACTIONS (9)
  - DEPRESSED LEVEL OF CONSCIOUSNESS [None]
  - ENDODONTIC PROCEDURE [None]
  - FATIGUE [None]
  - HEPATIC CIRRHOSIS [None]
  - LIBIDO DECREASED [None]
  - PLATELET COUNT DECREASED [None]
  - RED BLOOD CELL COUNT DECREASED [None]
  - TREMOR [None]
  - WHITE BLOOD CELL COUNT DECREASED [None]
